FAERS Safety Report 4396940-2 (Version None)
Quarter: 2004Q2

REPORT INFORMATION
  Report Type: 
  Country: None (occurrence: None)
  Receive Date: 20040621
  Receipt Date: 20040308
  Transmission Date: 20050107
  Serious: Yes (Other)
  Sender: FDA-Public Use
  Company Number: USA-2004-0013669

PATIENT
  Age: 34 Year
  Sex: Male

DRUGS (5)
  1. OXYCONTIN [Suspect]
     Dosage: UNK MG, UNK; UNKNOWN
     Route: 065
  2. XANAX [Suspect]
     Dosage: UNK UNK, UNK; UNKNOWN
     Route: 065
  3. COCAINE (COCAINE) [Suspect]
     Dosage: UNK UNK, UNK; UNKNOWN
     Route: 065
  4. HEROIN (DIAMORPHINE) [Suspect]
     Dosage: UNK UNK, UNK; UNKNOWN
     Route: 065
  5. MARIJUANA (CANNABIS) [Suspect]
     Dosage: UNK UNK, UNK; UNKNOWN
     Route: 065

REACTIONS (1)
  - DRUG ABUSER [None]
